FAERS Safety Report 21855444 (Version 5)
Quarter: 2025Q2

REPORT INFORMATION
  Report Type: Spontaneous
  Country: ES (occurrence: ES)
  Receive Date: 20230112
  Receipt Date: 20250627
  Transmission Date: 20250717
  Serious: Yes (Hospitalization, Other)
  Sender: PFIZER
  Company Number: ES-GILEAD-2022-0591627

PATIENT
  Age: 61 Year
  Sex: Male
  Weight: 111 kg

DRUGS (144)
  1. CYTARABINE [Suspect]
     Active Substance: CYTARABINE
     Indication: Mantle cell lymphoma
     Route: 065
     Dates: start: 20220729, end: 20220730
  2. CYCLOPHOSPHAMIDE [Suspect]
     Active Substance: CYCLOPHOSPHAMIDE
     Indication: Mantle cell lymphoma
     Route: 065
     Dates: start: 20220825, end: 20220825
  3. CYCLOPHOSPHAMIDE [Suspect]
     Active Substance: CYCLOPHOSPHAMIDE
     Route: 065
     Dates: start: 20220826, end: 20220826
  4. CYCLOPHOSPHAMIDE [Suspect]
     Active Substance: CYCLOPHOSPHAMIDE
     Route: 065
     Dates: start: 20220827, end: 20220827
  5. FLUDARABINE [Suspect]
     Active Substance: FLUDARABINE PHOSPHATE
     Indication: Mantle cell lymphoma
     Route: 065
     Dates: start: 20220825, end: 20220825
  6. FLUDARABINE [Suspect]
     Active Substance: FLUDARABINE PHOSPHATE
     Route: 065
     Dates: start: 20220826, end: 20220826
  7. FLUDARABINE [Suspect]
     Active Substance: FLUDARABINE PHOSPHATE
     Route: 065
     Dates: start: 20220827, end: 20220827
  8. MESNA [Suspect]
     Active Substance: MESNA
     Indication: Mantle cell lymphoma
     Route: 065
     Dates: start: 20220825, end: 20220825
  9. MESNA [Suspect]
     Active Substance: MESNA
     Route: 065
     Dates: start: 20220826, end: 20220826
  10. MESNA [Suspect]
     Active Substance: MESNA
     Route: 065
     Dates: start: 20220827, end: 20220827
  11. MESNA [Suspect]
     Active Substance: MESNA
     Route: 065
     Dates: start: 20220828, end: 20220828
  12. BREXUCABTAGENE AUTOLEUCEL [Suspect]
     Active Substance: BREXUCABTAGENE AUTOLEUCEL
     Indication: Mantle cell lymphoma
  13. DEXAMETHASONE [Concomitant]
     Active Substance: DEXAMETHASONE
     Dosage: 4 MG, DAILY
     Route: 048
     Dates: start: 20220701, end: 20220707
  14. DEXAMETHASONE [Concomitant]
     Active Substance: DEXAMETHASONE
     Dosage: 1,OTHER,THREE TIMES DAILY
     Route: 050
     Dates: start: 20220729, end: 20220730
  15. DEXAMETHASONE [Concomitant]
     Active Substance: DEXAMETHASONE
     Dosage: 10 MG, 4X/DAY
     Route: 042
     Dates: start: 20220918, end: 20220919
  16. DEXAMETHASONE [Concomitant]
     Active Substance: DEXAMETHASONE
     Dosage: 10 MG, 3X/DAY
     Route: 042
     Dates: start: 20220920, end: 20220920
  17. DEXAMETHASONE [Concomitant]
     Active Substance: DEXAMETHASONE
     Dosage: 10 MG, 2X/DAY
     Route: 042
     Dates: start: 20220921, end: 20220921
  18. DEXAMETHASONE [Concomitant]
     Active Substance: DEXAMETHASONE
     Route: 042
     Dates: start: 20220922, end: 20220922
  19. OMEPRAZOLE [Concomitant]
     Active Substance: OMEPRAZOLE
     Dosage: 20 MG, DAILY
     Route: 048
  20. EVUSHELD [Concomitant]
     Active Substance: CILGAVIMAB\TIXAGEVIMAB
     Route: 030
     Dates: start: 202207, end: 202207
  21. ALLOPURINOL [Concomitant]
     Active Substance: ALLOPURINOL
     Dosage: 300 MG, DAILY
     Route: 048
  22. ALLOPURINOL [Concomitant]
     Active Substance: ALLOPURINOL
     Dosage: 300 MG, DAILY
     Route: 048
  23. ALLOPURINOL [Concomitant]
     Active Substance: ALLOPURINOL
     Dosage: 300 MG, DAILY
     Route: 048
     Dates: start: 20220728
  24. ALLOPURINOL [Concomitant]
     Active Substance: ALLOPURINOL
     Route: 048
     Dates: start: 20220801, end: 20220801
  25. ALLOPURINOL [Concomitant]
     Active Substance: ALLOPURINOL
     Route: 048
     Dates: start: 20220806, end: 20220806
  26. ALLOPURINOL [Concomitant]
     Active Substance: ALLOPURINOL
     Route: 048
     Dates: start: 20220808, end: 20220808
  27. ALLOPURINOL [Concomitant]
     Active Substance: ALLOPURINOL
     Dosage: 300 MG, DAILY
     Route: 048
     Dates: start: 20220810, end: 20220823
  28. ALLOPURINOL [Concomitant]
     Active Substance: ALLOPURINOL
     Dosage: 300MG, DAILY
     Route: 048
     Dates: start: 20220820, end: 20221017
  29. ALLOPURINOL [Concomitant]
     Active Substance: ALLOPURINOL
     Route: 048
     Dates: start: 20220824, end: 20220824
  30. NITROGLYCERIN [Concomitant]
     Active Substance: NITROGLYCERIN
     Dosage: 0.4 MG, DAILY
     Route: 048
     Dates: start: 2013
  31. BISOPROLOL [Concomitant]
     Active Substance: BISOPROLOL
     Dosage: 2.5 MG, DAILY
     Route: 048
  32. BISOPROLOL [Concomitant]
     Active Substance: BISOPROLOL
     Dosage: 2.5 MG, DAILY
     Route: 048
  33. BISOPROLOL [Concomitant]
     Active Substance: BISOPROLOL
     Dosage: 2.5 MG, DAILY
     Route: 048
     Dates: end: 20221023
  34. CALCIUM [Concomitant]
     Active Substance: CALCIUM
     Route: 042
     Dates: start: 20220628, end: 20220628
  35. ATORVASTATIN [Concomitant]
     Active Substance: ATORVASTATIN
     Dosage: 10 MG, DAILY
     Route: 048
  36. ENALAPRIL [Concomitant]
     Active Substance: ENALAPRIL
     Dosage: 5 MG, DAILY
     Route: 048
  37. ENALAPRIL [Concomitant]
     Active Substance: ENALAPRIL
     Dosage: 5 MG, DAILY
     Route: 048
  38. ENALAPRIL [Concomitant]
     Active Substance: ENALAPRIL
     Dosage: 5 MG, DAILY
     Route: 048
     Dates: end: 20220728
  39. ASPIRIN [Concomitant]
     Active Substance: ASPIRIN
     Dosage: 100 MG, DAILY
     Route: 048
     Dates: start: 2013
  40. ASPIRIN [Concomitant]
     Active Substance: ASPIRIN
     Dosage: 100 MG, DAILY
     Route: 048
     Dates: start: 2013, end: 20220728
  41. ASPIRIN [Concomitant]
     Active Substance: ASPIRIN
     Route: 048
     Dates: start: 20220801, end: 20220801
  42. ASPIRIN [Concomitant]
     Active Substance: ASPIRIN
     Route: 048
     Dates: start: 20220806, end: 20220806
  43. ASPIRIN [Concomitant]
     Active Substance: ASPIRIN
     Dosage: 100 MG, DAILY
     Route: 048
     Dates: start: 20220824, end: 20220830
  44. ALBUMIN HUMAN [Concomitant]
     Active Substance: ALBUMIN HUMAN
     Dosage: 10 G, 3X/DAY
     Route: 042
     Dates: start: 20220825, end: 20220829
  45. ALBUMIN HUMAN [Concomitant]
     Active Substance: ALBUMIN HUMAN
     Dosage: 10 G, DAILY
     Route: 042
     Dates: start: 20220830, end: 20220902
  46. ALBUMIN HUMAN [Concomitant]
     Active Substance: ALBUMIN HUMAN
     Dosage: 10 G, 2X/DAY
     Route: 042
     Dates: start: 20220912, end: 20220912
  47. ALBUMIN HUMAN [Concomitant]
     Active Substance: ALBUMIN HUMAN
     Dosage: 10 G, 3X/DAY
     Route: 042
     Dates: start: 20220913, end: 20220921
  48. POTASSIUM [Concomitant]
     Active Substance: POTASSIUM
     Dosage: 600 MG, DAILY
     Route: 048
     Dates: start: 20220811, end: 20220823
  49. POTASSIUM [Concomitant]
     Active Substance: POTASSIUM
     Route: 042
     Dates: start: 20220811, end: 20220811
  50. METOCLOPRAMIDE [Concomitant]
     Active Substance: METOCLOPRAMIDE
     Dosage: 10 MG, 3X/DAY
     Route: 042
     Dates: start: 20220729, end: 20220730
  51. METOCLOPRAMIDE [Concomitant]
     Active Substance: METOCLOPRAMIDE
     Route: 042
     Dates: start: 20220915, end: 20220915
  52. METOCLOPRAMIDE [Concomitant]
     Active Substance: METOCLOPRAMIDE
     Dosage: 10 MG, DAILY
     Route: 042
     Dates: start: 20220918, end: 20220919
  53. ONDANSETRON [Concomitant]
     Active Substance: ONDANSETRON
     Route: 042
     Dates: start: 20220730, end: 20220730
  54. ONDANSETRON [Concomitant]
     Active Substance: ONDANSETRON
     Dosage: 8 MG, 3X/DAY
     Route: 042
     Dates: start: 20220825, end: 20220828
  55. VITAMIN K [Concomitant]
     Active Substance: PHYTONADIONE
     Route: 042
     Dates: start: 20220810, end: 20220810
  56. PIPERACILLIN AND TAZOBACTAM [Concomitant]
     Active Substance: PIPERACILLIN SODIUM\TAZOBACTAM SODIUM
     Dosage: 4/0.5,G,FOUR TIMES DAILY
     Route: 042
     Dates: start: 20220827, end: 20220828
  57. FOLIC ACID [Concomitant]
     Active Substance: FOLIC ACID
     Dosage: 5 MG, DAILY
     Route: 048
     Dates: start: 20220729, end: 20220823
  58. PARAFINEMULSJON NAF [Concomitant]
     Dosage: 15 ML, DAILY
     Route: 048
     Dates: start: 20220901, end: 20220915
  59. RASBURICASE [Concomitant]
     Active Substance: RASBURICASE
     Dosage: 20 MG, DAILY
     Route: 042
     Dates: start: 20220729, end: 20220730
  60. RASBURICASE [Concomitant]
     Active Substance: RASBURICASE
     Dosage: 19 MG, DAILY
     Route: 042
     Dates: start: 20220825, end: 20220828
  61. SULFAMETHOXAZOLE\TRIMETHOPRIM [Concomitant]
     Active Substance: SULFAMETHOXAZOLE\TRIMETHOPRIM
     Dosage: 160/800,MG,DAILY
     Route: 048
     Dates: start: 20220825, end: 20220830
  62. HUMAN RED BLOOD CELL [Concomitant]
     Active Substance: HUMAN RED BLOOD CELL
     Route: 042
     Dates: start: 20220830, end: 20220830
  63. HUMAN RED BLOOD CELL [Concomitant]
     Active Substance: HUMAN RED BLOOD CELL
     Route: 042
     Dates: start: 20220831, end: 20220831
  64. HUMAN RED BLOOD CELL [Concomitant]
     Active Substance: HUMAN RED BLOOD CELL
     Route: 042
     Dates: start: 20220905, end: 20220905
  65. HUMAN RED BLOOD CELL [Concomitant]
     Active Substance: HUMAN RED BLOOD CELL
     Route: 042
     Dates: start: 20220911, end: 20220911
  66. HUMAN RED BLOOD CELL [Concomitant]
     Active Substance: HUMAN RED BLOOD CELL
     Route: 042
     Dates: start: 20220912, end: 20220912
  67. HUMAN RED BLOOD CELL [Concomitant]
     Active Substance: HUMAN RED BLOOD CELL
     Route: 042
     Dates: start: 20220914, end: 20220914
  68. HUMAN RED BLOOD CELL [Concomitant]
     Active Substance: HUMAN RED BLOOD CELL
     Route: 042
     Dates: start: 20220916, end: 20220916
  69. HUMAN RED BLOOD CELL [Concomitant]
     Active Substance: HUMAN RED BLOOD CELL
     Route: 042
     Dates: start: 20220920, end: 20220920
  70. HUMAN RED BLOOD CELL [Concomitant]
     Active Substance: HUMAN RED BLOOD CELL
     Route: 042
     Dates: start: 20220921, end: 20220921
  71. HUMAN RED BLOOD CELL [Concomitant]
     Active Substance: HUMAN RED BLOOD CELL
     Route: 042
     Dates: start: 20220922, end: 20220922
  72. SPIRONOLACTONE [Concomitant]
     Active Substance: SPIRONOLACTONE
     Dosage: 100 MG, DAILY
     Route: 048
     Dates: end: 20220728
  73. SPIRONOLACTONE [Concomitant]
     Active Substance: SPIRONOLACTONE
     Route: 048
     Dates: start: 20220802, end: 20220802
  74. SPIRONOLACTONE [Concomitant]
     Active Substance: SPIRONOLACTONE
     Route: 048
     Dates: start: 20220806, end: 20220806
  75. SPIRONOLACTONE [Concomitant]
     Active Substance: SPIRONOLACTONE
     Dosage: 200 MG, DAILY
     Route: 048
     Dates: start: 20220810, end: 20220811
  76. SPIRONOLACTONE [Concomitant]
     Active Substance: SPIRONOLACTONE
     Dosage: 100 MG, DAILY
     Route: 048
     Dates: start: 20220812, end: 20220823
  77. SPIRONOLACTONE [Concomitant]
     Active Substance: SPIRONOLACTONE
     Dosage: 100 MG, DAILY
     Route: 048
     Dates: start: 20220827, end: 20220902
  78. SPIRONOLACTONE [Concomitant]
     Active Substance: SPIRONOLACTONE
     Dosage: 100 MG, DAILY
     Route: 048
  79. DEXCHLORPHENIRAMINE [Concomitant]
     Active Substance: DEXCHLORPHENIRAMINE
     Dosage: 5 MG, DAILY
     Route: 042
     Dates: start: 20220825, end: 20220827
  80. PIPERACILLIN SODIUM\TAZOBACTAM SODIUM [Concomitant]
     Active Substance: PIPERACILLIN SODIUM\TAZOBACTAM SODIUM
     Dosage: 4.5 G, 4X/DAY
     Route: 042
     Dates: start: 20220810, end: 20220811
  81. BEMIPARIN [Concomitant]
     Active Substance: BEMIPARIN
     Dosage: 2500 IU, DAILY
     Route: 058
     Dates: start: 20220729, end: 20220806
  82. BEMIPARIN [Concomitant]
     Active Substance: BEMIPARIN
     Dosage: 3500,OTHER,DAILY
     Route: 058
     Dates: start: 20220823, end: 20220901
  83. LEVOFLOXACIN [Concomitant]
     Active Substance: LEVOFLOXACIN
     Dosage: 500 MG, DAILY
     Route: 048
     Dates: start: 20220811, end: 20220816
  84. LEVOFLOXACIN [Concomitant]
     Active Substance: LEVOFLOXACIN
     Dosage: 500 MG, DAILY
     Route: 048
     Dates: start: 20220905, end: 20220906
  85. LEVOFLOXACIN [Concomitant]
     Active Substance: LEVOFLOXACIN
     Dosage: 500 MG, 2X/DAY
     Route: 048
     Dates: start: 20220909, end: 20220909
  86. CANRENOATE POTASSIUM [Concomitant]
     Active Substance: CANRENOATE POTASSIUM
     Route: 042
     Dates: start: 20220801, end: 20220801
  87. ACYCLOVIR [Concomitant]
     Active Substance: ACYCLOVIR
     Dosage: 200 MG, 2X/DAY
     Route: 048
     Dates: start: 20220825, end: 20220904
  88. ACYCLOVIR [Concomitant]
     Active Substance: ACYCLOVIR
     Dosage: 800 MG, 2X/DAY
     Route: 048
     Dates: start: 20220905, end: 20221024
  89. MAGNESIUM SULFATE [Concomitant]
     Active Substance: MAGNESIUM SULFATE
     Route: 042
     Dates: start: 20220826, end: 20220826
  90. MAGNESIUM SULFATE [Concomitant]
     Active Substance: MAGNESIUM SULFATE
     Dosage: 2,OTHER,DAILY
     Route: 042
     Dates: start: 20220827, end: 20220828
  91. MAGNESIUM SULFATE [Concomitant]
     Active Substance: MAGNESIUM SULFATE
     Dosage: 2,OTHER,DAILY
     Route: 042
     Dates: start: 20220829, end: 20220830
  92. MAGNESIUM SULFATE [Concomitant]
     Active Substance: MAGNESIUM SULFATE
     Route: 042
     Dates: start: 20220915, end: 20220915
  93. MAGNESIUM SULFATE [Concomitant]
     Active Substance: MAGNESIUM SULFATE
     Dosage: 2,OTHER,DAILY
     Route: 042
     Dates: start: 20220916, end: 20220920
  94. URSODIOL [Concomitant]
     Active Substance: URSODIOL
     Dosage: 300 MG, 4X/DAY
     Route: 048
     Dates: start: 20220728, end: 20221024
  95. ACETAMINOPHEN [Concomitant]
     Active Substance: ACETAMINOPHEN
     Route: 042
     Dates: start: 20220810, end: 20220810
  96. ACETAMINOPHEN [Concomitant]
     Active Substance: ACETAMINOPHEN
     Dosage: 1 G, DAILY
     Route: 042
     Dates: start: 20220825, end: 20220827
  97. ACETAMINOPHEN [Concomitant]
     Active Substance: ACETAMINOPHEN
     Dosage: 1 G, DAILY
     Route: 048
     Dates: start: 20220909, end: 20220909
  98. ACETAMINOPHEN [Concomitant]
     Active Substance: ACETAMINOPHEN
     Route: 042
     Dates: start: 20220915, end: 20220915
  99. SODIUM CHLORIDE [Concomitant]
     Active Substance: SODIUM CHLORIDE
     Dosage: 1000 ML, DAILY
     Route: 042
     Dates: start: 20220729, end: 20220731
  100. SODIUM CHLORIDE [Concomitant]
     Active Substance: SODIUM CHLORIDE
     Route: 042
     Dates: start: 20220801, end: 20220801
  101. SODIUM CHLORIDE [Concomitant]
     Active Substance: SODIUM CHLORIDE
     Dosage: 250 ML, 2X/DAY
     Route: 042
     Dates: start: 20220810, end: 20220811
  102. FUROSEMIDE [Concomitant]
     Active Substance: FUROSEMIDE
     Dosage: 40 MG, DAILY
     Route: 048
     Dates: start: 202207, end: 20220728
  103. FUROSEMIDE [Concomitant]
     Active Substance: FUROSEMIDE
     Route: 048
     Dates: start: 20220728, end: 20220728
  104. FUROSEMIDE [Concomitant]
     Active Substance: FUROSEMIDE
     Dosage: 250 MG, DAILY
     Route: 042
     Dates: start: 20220729, end: 20220731
  105. FUROSEMIDE [Concomitant]
     Active Substance: FUROSEMIDE
     Dosage: 20 MG, DAILY
     Route: 048
     Dates: start: 20220801, end: 20220802
  106. FUROSEMIDE [Concomitant]
     Active Substance: FUROSEMIDE
     Dosage: 40 MG, 2X/DAY
     Route: 048
     Dates: start: 20220801, end: 20220812
  107. FUROSEMIDE [Concomitant]
     Active Substance: FUROSEMIDE
     Route: 042
     Dates: start: 20220813, end: 20220828
  108. FUROSEMIDE [Concomitant]
     Active Substance: FUROSEMIDE
     Dosage: 20 MG, DAILY
     Route: 042
     Dates: start: 20220825, end: 20220913
  109. FUROSEMIDE [Concomitant]
     Active Substance: FUROSEMIDE
     Dosage: 40 MG, 2X/DAY
     Route: 042
     Dates: start: 20220829, end: 20220830
  110. FUROSEMIDE [Concomitant]
     Active Substance: FUROSEMIDE
     Route: 042
     Dates: start: 20220830, end: 20220830
  111. FUROSEMIDE [Concomitant]
     Active Substance: FUROSEMIDE
     Route: 042
     Dates: start: 20220905, end: 20220905
  112. FUROSEMIDE [Concomitant]
     Active Substance: FUROSEMIDE
     Dosage: 20 MG, 3X/DAY
     Route: 042
     Dates: start: 20220914, end: 20221008
  113. FUROSEMIDE [Concomitant]
     Active Substance: FUROSEMIDE
     Route: 042
     Dates: start: 20220914, end: 20220914
  114. FUROSEMIDE [Concomitant]
     Active Substance: FUROSEMIDE
     Route: 042
     Dates: start: 20220920, end: 20220920
  115. ALOCLAIR PLUS [Concomitant]
     Dosage: 10 ML, 3X/DAY
     Route: 050
     Dates: start: 20220825, end: 20220923
  116. POLYETHYLENE GLYCOLS [Concomitant]
     Active Substance: POLYETHYLENE GLYCOLS
     Dosage: 13.8 G, DAILY
     Route: 048
     Dates: start: 20220824, end: 20220828
  117. LACTULOSE [Concomitant]
     Active Substance: LACTULOSE
     Dosage: 10 G, DAILY
     Route: 048
     Dates: start: 202207, end: 20220812
  118. LACTULOSE [Concomitant]
     Active Substance: LACTULOSE
     Route: 048
     Dates: start: 20220813, end: 20220823
  119. LACTULOSE [Concomitant]
     Active Substance: LACTULOSE
     Dosage: 10 MG, DAILY
     Route: 048
     Dates: start: 20220909, end: 20220914
  120. LACTULOSE [Concomitant]
     Active Substance: LACTULOSE
     Dosage: 10 G, 2X/DAY
     Route: 048
     Dates: start: 20220915, end: 20220915
  121. CLORHEXIDINA [CHLORHEXIDINE] [Concomitant]
     Dosage: 15 ML, 3X/DAY
     Route: 050
     Dates: start: 20220825, end: 20221024
  122. PLATELETS [Concomitant]
     Active Substance: HUMAN PLATELET, ALLOGENIC
     Route: 042
     Dates: start: 20220808, end: 20220808
  123. PLATELETS [Concomitant]
     Active Substance: HUMAN PLATELET, ALLOGENIC
     Route: 042
     Dates: start: 20220809, end: 20220809
  124. PLATELETS [Concomitant]
     Active Substance: HUMAN PLATELET, ALLOGENIC
     Route: 042
     Dates: start: 20220810, end: 20220810
  125. PLATELETS [Concomitant]
     Active Substance: HUMAN PLATELET, ALLOGENIC
     Route: 042
     Dates: start: 20220812, end: 20220812
  126. PLATELETS [Concomitant]
     Active Substance: HUMAN PLATELET, ALLOGENIC
     Route: 042
     Dates: start: 20220905, end: 20220905
  127. PLATELETS [Concomitant]
     Active Substance: HUMAN PLATELET, ALLOGENIC
     Route: 042
     Dates: start: 20220912, end: 20220912
  128. PLATELETS [Concomitant]
     Active Substance: HUMAN PLATELET, ALLOGENIC
     Route: 042
     Dates: start: 20220913, end: 20220913
  129. PLATELETS [Concomitant]
     Active Substance: HUMAN PLATELET, ALLOGENIC
     Route: 042
     Dates: start: 20220914, end: 20220914
  130. PLATELETS [Concomitant]
     Active Substance: HUMAN PLATELET, ALLOGENIC
     Route: 042
     Dates: start: 20220915, end: 20220915
  131. PLATELETS [Concomitant]
     Active Substance: HUMAN PLATELET, ALLOGENIC
     Route: 042
     Dates: start: 20220916, end: 20220916
  132. PLATELETS [Concomitant]
     Active Substance: HUMAN PLATELET, ALLOGENIC
     Route: 042
     Dates: start: 20220917, end: 20220917
  133. PLATELETS [Concomitant]
     Active Substance: HUMAN PLATELET, ALLOGENIC
     Dosage: 1 OTHER, 2X/DAY
     Route: 042
     Dates: start: 20220918, end: 20220918
  134. PLATELETS [Concomitant]
     Active Substance: HUMAN PLATELET, ALLOGENIC
     Route: 042
     Dates: start: 20220919, end: 20220919
  135. PLATELETS [Concomitant]
     Active Substance: HUMAN PLATELET, ALLOGENIC
     Route: 042
     Dates: start: 20220920, end: 20220920
  136. PLATELETS [Concomitant]
     Active Substance: HUMAN PLATELET, ALLOGENIC
     Route: 042
     Dates: start: 20220921, end: 20220921
  137. PLATELETS [Concomitant]
     Active Substance: HUMAN PLATELET, ALLOGENIC
     Route: 042
     Dates: start: 20220922, end: 20220922
  138. MAGNESIUM HYDROXIDE [Concomitant]
     Active Substance: MAGNESIUM HYDROXIDE
     Dosage: 2.4 G, 2X/DAY
     Route: 048
     Dates: start: 20220827, end: 20220828
  139. ALBUMINE HUMAINE 20% BIOTEST [Concomitant]
     Dosage: 10 G, 2X/DAY
     Route: 042
     Dates: start: 20220728, end: 20220731
  140. CALCIUM GLUCONATE [Concomitant]
     Active Substance: CALCIUM GLUCONATE
     Dosage: 1,OTHER,DAILY
     Route: 042
     Dates: start: 20220826, end: 20220827
  141. MYCOSTATIN [Concomitant]
     Active Substance: NYSTATIN
     Dosage: 5 ML, 3X/DAY
     Route: 050
     Dates: start: 20220825, end: 20221024
  142. DEXTROSE [Concomitant]
     Active Substance: DEXTROSE MONOHYDRATE
     Dosage: 500 ML, 2X/DAY
     Route: 042
     Dates: start: 20220825, end: 20220828
  143. MINERAL OIL [Concomitant]
     Active Substance: MINERAL OIL
     Dosage: 15 ML, DAILY
     Route: 048
     Dates: start: 20220901, end: 20220915
  144. CANRENOATE POTASSIUM [Concomitant]
     Active Substance: CANRENOATE POTASSIUM
     Route: 042
     Dates: start: 20220801, end: 20220801

REACTIONS (3)
  - Hepatic cirrhosis [Recovered/Resolved]
  - Condition aggravated [Recovered/Resolved]
  - Renal impairment [Recovered/Resolved]

NARRATIVE: CASE EVENT DATE: 20220728
